FAERS Safety Report 13670812 (Version 1)
Quarter: 2017Q2

REPORT INFORMATION
  Report Type: Spontaneous
  Country: US (occurrence: US)
  Receive Date: 20170620
  Receipt Date: 20170620
  Transmission Date: 20170830
  Serious: No
  Sender: FDA-Public Use
  Company Number: US-ROCHE-1015899

PATIENT
  Sex: Female

DRUGS (1)
  1. XELODA [Suspect]
     Active Substance: CAPECITABINE
     Indication: BREAST CANCER METASTATIC
     Dosage: 3 TABS IN MORNING AND 3 TABS AT NIGHT
     Route: 048
     Dates: start: 201109

REACTIONS (2)
  - Sinus disorder [Unknown]
  - Headache [Unknown]
